FAERS Safety Report 9000709 (Version 2)
Quarter: 2013Q3

REPORT INFORMATION
  Report Type: Report from Study
  Country: US (occurrence: US)
  Receive Date: 20130107
  Receipt Date: 20130708
  Transmission Date: 20140515
  Serious: Yes (Death, Other)
  Sender: FDA-Public Use
  Company Number: US-ABBOTT-13P-163-1030373-00

PATIENT
  Sex: Female
  Weight: 70.82 kg

DRUGS (5)
  1. MAVIK [Suspect]
     Indication: ESSENTIAL HYPERTENSION
     Dates: start: 20110419, end: 20120611
  2. CRESTOR [Concomitant]
     Indication: PRODUCT USED FOR UNKNOWN INDICATION
     Dosage: 5 MG DAILY
     Dates: start: 201105, end: 201210
  3. TOPROL [Concomitant]
     Indication: PRODUCT USED FOR UNKNOWN INDICATION
     Dosage: 100 MG DAILY
     Dates: start: 200912, end: 201210
  4. HYDROCHLOROTHIAZIDE [Concomitant]
     Indication: PRODUCT USED FOR UNKNOWN INDICATION
     Dosage: 25 MG DAILY
     Dates: start: 200910, end: 201210
  5. FLEXERIL [Concomitant]
     Indication: PRODUCT USED FOR UNKNOWN INDICATION
     Dosage: THREE TIMES DAILY AS REQUIRED
     Dates: start: 20120709, end: 201210

REACTIONS (1)
  - Colon cancer [Fatal]
